FAERS Safety Report 24865358 (Version 1)
Quarter: 2025Q1

REPORT INFORMATION
  Report Type: Spontaneous
  Country: US (occurrence: US)
  Receive Date: 20250121
  Receipt Date: 20250121
  Transmission Date: 20250409
  Serious: Yes (Death)
  Sender: KARYOPHARM THERAPEUTICS
  Company Number: US-KARYOPHARM-2025KPT000068

PATIENT

DRUGS (8)
  1. XPOVIO [Suspect]
     Active Substance: SELINEXOR
     Indication: Plasma cell myeloma
     Dosage: 80 MG, WEEKLY FOR 3 WEEKS ON, THEN 1 WEEK OFF
     Route: 048
     Dates: start: 20241022
  2. DEXAMETHASONE [Concomitant]
     Active Substance: DEXAMETHASONE
  3. ASPIRIN [Concomitant]
     Active Substance: ASPIRIN
  4. OLANZAPINE [Concomitant]
     Active Substance: OLANZAPINE
  5. POMALYST [Concomitant]
     Active Substance: POMALIDOMIDE
  6. SERTRALINE [Concomitant]
     Active Substance: SERTRALINE HYDROCHLORIDE
  7. VALACYCLOVIR [Concomitant]
     Active Substance: VALACYCLOVIR HYDROCHLORIDE
  8. ZOFRAN [Concomitant]
     Active Substance: ONDANSETRON HYDROCHLORIDE

REACTIONS (1)
  - Death [Fatal]
